FAERS Safety Report 9002352 (Version 7)
Quarter: 2014Q2

REPORT INFORMATION
  Report Type: Report from Study
  Country: CA (occurrence: CA)
  Receive Date: 20130107
  Receipt Date: 20140411
  Transmission Date: 20141212
  Serious: Yes (Hospitalization, Other)
  Sender: FDA-Public Use
  Company Number: PHHY2012CA122285

PATIENT
  Age: 68 Year
  Sex: Male

DRUGS (13)
  1. GLEEVEC [Suspect]
     Indication: GASTROINTESTINAL STROMAL TUMOUR
     Dosage: 400 MG, BID
     Route: 048
     Dates: start: 200702
  2. GLEEVEC [Suspect]
     Dosage: 400 MG, BID
     Route: 048
     Dates: start: 200801
  3. GLEEVEC [Suspect]
     Dosage: 400 MG, BID
     Route: 048
  4. ASA [Concomitant]
     Dosage: 81 MG, UNK
     Dates: start: 201203
  5. COVERSYL [Concomitant]
     Dosage: 4 MG, UNK
  6. ATENOLOL [Concomitant]
     Dosage: 50 MG, UNK
  7. EUROFER [Concomitant]
     Dosage: 300 MG, BID
  8. ROSUVASTATIN [Concomitant]
     Dosage: 10 MG, UNK
  9. AMLODIPINE [Concomitant]
     Dosage: 10 MG, UNK
  10. MULTIVITAMINS [Concomitant]
     Dosage: UNK UKN, UNK
  11. TRANSFUSIONS [Concomitant]
     Dosage: UNK UKN, UNK
  12. PLAVIX [Concomitant]
     Dosage: UNK UKN, UNK
  13. IRON SUPPLEMENTS [Concomitant]
     Dosage: UNK UKN, UNK

REACTIONS (23)
  - Coronary artery occlusion [Unknown]
  - Haemorrhage [Unknown]
  - Myocardial infarction [Unknown]
  - Chest pain [Unknown]
  - Influenza [Unknown]
  - Back pain [Unknown]
  - Haematochezia [Unknown]
  - Cellulitis [Not Recovered/Not Resolved]
  - Metastasis [Unknown]
  - Asthenia [Unknown]
  - Feeling cold [Unknown]
  - Abnormal faeces [Unknown]
  - White blood cell count decreased [Not Recovered/Not Resolved]
  - Skin exfoliation [Unknown]
  - Peripheral swelling [Unknown]
  - Fatigue [Unknown]
  - Tinea pedis [Not Recovered/Not Resolved]
  - Dermatitis atopic [Unknown]
  - Platelet count decreased [Unknown]
  - Nausea [Recovering/Resolving]
  - Anaemia [Not Recovered/Not Resolved]
  - Haemoglobin decreased [Not Recovered/Not Resolved]
  - Retching [Unknown]
